FAERS Safety Report 4704337-8 (Version None)
Quarter: 2005Q2

REPORT INFORMATION
  Report Type: 
  Country: None (occurrence: None)
  Receive Date: 20050628
  Receipt Date: 20050616
  Transmission Date: 20051028
  Serious: Yes (Other)
  Sender: FDA-Public Use
  Company Number: 2005088994

PATIENT
  Age: 29 Year
  Sex: Male

DRUGS (1)
  1. AZITHROMYCIN [Suspect]
     Indication: PERTUSSIS

REACTIONS (4)
  - CYTOLYTIC HEPATITIS [None]
  - HEPATITIS B [None]
  - HEPATITIS FULMINANT [None]
  - PROTHROMBIN LEVEL DECREASED [None]
